FAERS Safety Report 8076908-5 (Version None)
Quarter: 2012Q1

REPORT INFORMATION
  Report Type: 
  Country: None (occurrence: None)
  Receive Date: 20120127
  Receipt Date: 20120112
  Transmission Date: 20120608
  Serious: Yes (Hospitalization, Other)
  Sender: FDA-Public Use
  Company Number: PHEH2011US012077

PATIENT
  Sex: Female
  Weight: 106 kg

DRUGS (4)
  1. PANTOPRAZOLE [Concomitant]
     Indication: ULCER
  2. PREDNISOLONE [Concomitant]
  3. AFINITOR [Suspect]
     Indication: PANCREATIC NEUROENDOCRINE TUMOUR
     Dosage: 10 MG, QD
     Route: 048
     Dates: start: 20110108
  4. OMEPRAZOLE [Concomitant]
     Route: 048

REACTIONS (6)
  - PULMONARY EMBOLISM [None]
  - DIARRHOEA [None]
  - HAEMATEMESIS [None]
  - OEDEMA PERIPHERAL [None]
  - DEEP VEIN THROMBOSIS [None]
  - CONCOMITANT DISEASE PROGRESSION [None]
